FAERS Safety Report 17563418 (Version 1)
Quarter: 2020Q1

REPORT INFORMATION
  Report Type: Spontaneous
  Country: PL (occurrence: PL)
  Receive Date: 20200320
  Receipt Date: 20200320
  Transmission Date: 20200409
  Serious: Yes (Life-Threatening, Hospitalization)
  Sender: FDA-Public Use
  Company Number: PL-TEVA-2020-PL-1205449

PATIENT
  Age: 70 Year
  Sex: Female
  Weight: 69 kg

DRUGS (1)
  1. DOCETAXEL. [Suspect]
     Active Substance: DOCETAXEL
     Dosage: SCHEDULED DOSE: 125 MG; THE PATIENT HAD NOT RECEIVED SUCH A DOSE; AT THE BEGINNING OF THE INFUSION,
     Route: 041
     Dates: start: 20190311, end: 20190311

REACTIONS (5)
  - Loss of consciousness [Recovered/Resolved]
  - Cyanosis [Recovered/Resolved]
  - Dyspnoea [Recovered/Resolved]
  - Urinary incontinence [Recovered/Resolved]
  - Apnoea [Recovered/Resolved]

NARRATIVE: CASE EVENT DATE: 20190311
